FAERS Safety Report 5940192-6 (Version None)
Quarter: 2008Q4

REPORT INFORMATION
  Report Type: 
  Country: None (occurrence: None)
  Receive Date: 20081031
  Receipt Date: 20081031
  Transmission Date: 20090506
  Serious: Yes (Disabling)
  Sender: FDA-Public Use
  Company Number: None

PATIENT
  Age: 21 Year
  Sex: Male

DRUGS (2)
  1. TRAZODONE HCL [Suspect]
     Indication: INSOMNIA
     Dosage: 200 MG AT BEDTIME PO
     Route: 048
     Dates: start: 20080914, end: 20080923
  2. TRAZODONE HCL [Suspect]
     Indication: SCHIZOPHRENIA, PARANOID TYPE
     Dosage: 200 MG AT BEDTIME PO
     Route: 048
     Dates: start: 20080914, end: 20080923

REACTIONS (1)
  - PRIAPISM [None]
